FAERS Safety Report 5856698-4 (Version None)
Quarter: 2008Q3

REPORT INFORMATION
  Report Type: 
  Country: None (occurrence: None)
  Receive Date: 20080825
  Receipt Date: 20080813
  Transmission Date: 20090109
  Serious: Yes (Other)
  Sender: FDA-Public Use
  Company Number: BR-PFIZER INC-2007094489

PATIENT
  Sex: Female

DRUGS (2)
  1. FRONTAL [Suspect]
     Indication: ANXIETY
     Route: 048
  2. DIOVAN HCT [Suspect]
     Indication: BLOOD PRESSURE
     Dosage: FREQ:DAILY:EVERY DAY

REACTIONS (4)
  - ANXIETY [None]
  - BLOOD PRESSURE INCREASED [None]
  - INSOMNIA [None]
  - MOUTH INJURY [None]
